FAERS Safety Report 4670296-X (Version None)
Quarter: 2005Q2

REPORT INFORMATION
  Report Type: 
  Country: None (occurrence: None)
  Receive Date: 20050520
  Receipt Date: 20041109
  Transmission Date: 20051028
  Serious: Yes (Life-Threatening, Hospitalization, Other)
  Sender: FDA-Public Use
  Company Number: 9254

PATIENT
  Age: 5 Year
  Sex: Female

DRUGS (1)
  1. METHOTREXATE [Suspect]
     Indication: ACUTE LYMPHOCYTIC LEUKAEMIA
     Dosage: 600 MG ONCE IT
     Route: 037

REACTIONS (9)
  - ACCIDENTAL OVERDOSE [None]
  - BACK PAIN [None]
  - CARDIOPULMONARY FAILURE [None]
  - COMA [None]
  - CONVULSION [None]
  - DRUG TOXICITY [None]
  - INCORRECT DRUG DOSAGE FORM ADMINISTERED [None]
  - INCORRECT ROUTE OF DRUG ADMINISTRATION [None]
  - TACHYCARDIA [None]
